FAERS Safety Report 7549111-2 (Version None)
Quarter: 2011Q2

REPORT INFORMATION
  Report Type: 
  Country: None (occurrence: None)
  Receive Date: 20110615
  Receipt Date: 20110608
  Transmission Date: 20111010
  Serious: Yes (Hospitalization)
  Sender: FDA-Public Use
  Company Number: JP-AMGEN-JPNCT2011030525

PATIENT
  Age: 52 Year
  Sex: Female
  Weight: 37 kg

DRUGS (6)
  1. PANITUMUMAB [Suspect]
     Indication: COLORECTAL CANCER
     Dosage: 6 MG, Q2WK
     Dates: start: 20100701, end: 20101125
  2. FLUMETHOLON [Concomitant]
     Dosage: UNK
     Route: 047
  3. VENA [Concomitant]
     Route: 048
  4. LEVOFLOXACIN [Concomitant]
     Dosage: UNK
     Route: 047
  5. OFLOXACIN [Concomitant]
     Dosage: UNK
     Route: 047
  6. PYDOXAL [Concomitant]
     Route: 048

REACTIONS (5)
  - COLON CANCER METASTATIC [None]
  - NEOPLASM PROGRESSION [None]
  - DERMATITIS [None]
  - CONJUNCTIVITIS [None]
  - HOSPITALISATION [None]
